FAERS Safety Report 6526942-9 (Version None)
Quarter: 2010Q1

REPORT INFORMATION
  Report Type: 
  Country: None (occurrence: None)
  Receive Date: 20100105
  Receipt Date: 20091118
  Transmission Date: 20100710
  Serious: No
  Sender: FDA-Public Use
  Company Number: US-BAYER-200932725NA

PATIENT
  Age: 64 Year
  Sex: Male

DRUGS (12)
  1. NEXAVAR [Suspect]
     Indication: RENAL CANCER
     Dosage: TOTAL DAILY DOSE: 200 MG  UNIT DOSE: 200 MG
     Route: 048
     Dates: start: 20090829
  2. NEXAVAR [Suspect]
     Dosage: TOTAL DAILY DOSE: 400 MG  UNIT DOSE: 200 MG
     Route: 048
     Dates: start: 20090901
  3. NEXAVAR [Suspect]
     Dosage: TOTAL DAILY DOSE: 800 MG  UNIT DOSE: 200 MG
     Route: 048
     Dates: start: 20091114, end: 20091117
  4. METFORMIN [Concomitant]
  5. GEMIFBOLO [Concomitant]
  6. ELAVIL [Concomitant]
  7. FOSINOPRIL SODIUM [Concomitant]
  8. LOPRESSOR [Concomitant]
  9. TYLENOL (CAPLET) [Concomitant]
  10. VITAMINS [Concomitant]
  11. LIPITOR [Concomitant]
  12. TRAMADOL [Concomitant]

REACTIONS (2)
  - ABDOMINAL PAIN [None]
  - EPISTAXIS [None]
